FAERS Safety Report 10272632 (Version 2)
Quarter: 2014Q3

REPORT INFORMATION
  Report Type: Spontaneous
  Country: GB (occurrence: GB)
  Receive Date: 20140702
  Receipt Date: 20140819
  Transmission Date: 20150326
  Serious: Yes (Death)
  Sender: FDA-Public Use
  Company Number: PHFR2014GB004633

PATIENT
  Sex: Female
  Weight: 56 kg

DRUGS (5)
  1. DEPAKOTE [Concomitant]
     Active Substance: DIVALPROEX SODIUM
     Dosage: 250 MG, NOCTE
     Route: 048
  2. LANSOPRAZOLE. [Concomitant]
     Active Substance: LANSOPRAZOLE
     Dosage: 30 MG, DAILY
     Route: 048
  3. FERROUS FUMARATE [Concomitant]
     Active Substance: FERROUS FUMARATE
     Dosage: 210 MG, TDS
     Route: 048
  4. CLOZARIL [Suspect]
     Active Substance: CLOZAPINE
     Indication: SCHIZOPHRENIA
     Dosage: 300 MG, DAILY
     Route: 048
     Dates: start: 20010914
  5. CARBIMAZOL [Concomitant]
     Indication: HYPERTHYROIDISM
     Dosage: 15 MG, DAILY
     Route: 048

REACTIONS (2)
  - Oesophageal ulcer [Fatal]
  - Gastrointestinal haemorrhage [Fatal]
